FAERS Safety Report 16013545 (Version 1)
Quarter: 2019Q1

REPORT INFORMATION
  Report Type: Spontaneous
  Country: GB (occurrence: GB)
  Receive Date: 20190227
  Receipt Date: 20190227
  Transmission Date: 20190418
  Serious: Yes (Hospitalization)
  Sender: FDA-Public Use
  Company Number: GB-ASTRAZENECA-2019SE29365

PATIENT
  Age: 74 Year
  Sex: Male

DRUGS (14)
  1. CALCICHEW [Concomitant]
     Active Substance: CALCIUM CARBONATE
  2. TROSPIUM [Concomitant]
     Active Substance: TROSPIUM
     Dosage: 40.0MG UNKNOWN
  3. ACETYLSALICYLIC ACID [Concomitant]
     Active Substance: ASPIRIN
  4. TAMSULOSIN [Concomitant]
     Active Substance: TAMSULOSIN
     Dosage: IN THE MORNING.400UG/INHAL
  5. MACROGOL [Concomitant]
     Active Substance: POLYETHYLENE GLYCOLS
     Dosage: 1.0DF UNKNOWN
  6. CEFALEXIN [Suspect]
     Active Substance: CEPHALEXIN
     Indication: URINARY TRACT INFECTION
     Route: 048
     Dates: start: 20190121, end: 20190124
  7. AMOXICILLIN. [Suspect]
     Active Substance: AMOXICILLIN
     Indication: URINARY TRACT INFECTION
     Dosage: DOUBLE STRENGTH.500.0MG UNKNOWN
     Route: 048
     Dates: start: 20181217, end: 20181226
  8. ARANESP [Concomitant]
     Active Substance: DARBEPOETIN ALFA
     Dosage: 40.0UG/INHAL UNKNOWN
  9. OMEPRAZOLE. [Suspect]
     Active Substance: OMEPRAZOLE
     Indication: UPPER GASTROINTESTINAL HAEMORRHAGE
     Dosage: 20-40MG ONCE DAILY IN THE MORNING.
     Route: 048
     Dates: start: 20181208
  10. TEMOCILLIN [Suspect]
     Active Substance: TEMOCILLIN
     Indication: URINARY TRACT INFECTION
     Route: 042
     Dates: start: 20190117, end: 20190121
  11. LANSOPRAZOLE. [Suspect]
     Active Substance: LANSOPRAZOLE
     Indication: UPPER GASTROINTESTINAL HAEMORRHAGE
     Route: 048
     Dates: start: 20190121
  12. PIPERACILLIN SODIUM [Suspect]
     Active Substance: PIPERACILLIN SODIUM
     Indication: UROSEPSIS
     Route: 042
     Dates: start: 20181207
  13. DILTIAZEM. [Concomitant]
     Active Substance: DILTIAZEM
     Dosage: 360.0MG UNKNOWN
  14. SODIUM BICARBONATE. [Concomitant]
     Active Substance: SODIUM BICARBONATE
     Dosage: 4.0G UNKNOWN

REACTIONS (1)
  - Clostridium difficile infection [Recovering/Resolving]

NARRATIVE: CASE EVENT DATE: 20190130
